FAERS Safety Report 17440198 (Version 1)
Quarter: 2020Q1

REPORT INFORMATION
  Report Type: Spontaneous
  Country: CN (occurrence: CN)
  Receive Date: 20200220
  Receipt Date: 20200220
  Transmission Date: 20200409
  Serious: Yes (Other)
  Sender: FDA-Public Use
  Company Number: CN-BAXTER-2020BAX003727

PATIENT
  Age: 41 Year
  Sex: Female
  Weight: 69 kg

DRUGS (5)
  1. 0.9% SODIUM CHLORIDE INJECTION [Suspect]
     Active Substance: SODIUM CHLORIDE
     Dosage: FIRST CYCLE OF CHEMOTHERAPY, DOCETAXEL 125 MG + SODIUM CHLORIDE (NS)
     Route: 041
     Dates: start: 20191224, end: 20191224
  2. JINYOULI XINRUIBAI [Concomitant]
     Indication: PROPHYLAXIS
     Route: 058
     Dates: start: 20191225
  3. ENDOXAN [Suspect]
     Active Substance: CYCLOPHOSPHAMIDE
     Indication: BREAST CANCER FEMALE
     Dosage: FIRST CYCLE OF CHEMOTHERAPY, CYCLOPHOSPHAMIDE + SODIUM CHLORIDE (NS) 50 ML
     Route: 041
     Dates: start: 20191224, end: 20191224
  4. TAISUODI [DOCETAXEL] [Suspect]
     Active Substance: DOCETAXEL
     Indication: BREAST CANCER FEMALE
     Dosage: FIRST CYCLE OF CHEMOTHERAPY, DOCETAXEL + SODIUM CHLORIDE (NS) 250 ML
     Route: 041
     Dates: start: 20191224, end: 20191224
  5. 0.9% SODIUM CHLORIDE INJECTION [Suspect]
     Active Substance: SODIUM CHLORIDE
     Indication: MEDICATION DILUTION
     Dosage: FIRST CYCLE OF CHEMOTHERAPY, CYCLOPHOSPHAMIDE 1000 MG + SODIUM CHLORIDE (NS)
     Route: 041
     Dates: start: 20191224, end: 20191224

REACTIONS (2)
  - White blood cell count decreased [Recovered/Resolved]
  - Agranulocytosis [Recovered/Resolved]

NARRATIVE: CASE EVENT DATE: 20191230
